FAERS Safety Report 4854185-3 (Version None)
Quarter: 2005Q4

REPORT INFORMATION
  Report Type: 
  Country: None (occurrence: None)
  Receive Date: 20051213
  Receipt Date: 20051202
  Transmission Date: 20060501
  Serious: Yes (Hospitalization)
  Sender: FDA-Public Use
  Company Number: 2005163920

PATIENT
  Sex: Male

DRUGS (5)
  1. GENOTROPIN [Suspect]
     Indication: HYPOPITUITARISM
     Dosage: 4 MG (4 MG, EVERY DAY), SUBCUTANEOUS
     Route: 058
     Dates: start: 20030101
  2. TRILEPTAL [Suspect]
     Indication: CONVULSION
     Dosage: 3600 MG (600 MG, BID, EVERY DAY)
  3. LEVOXYL [Concomitant]
  4. DDAVP [Concomitant]
  5. METFORMIN HCL [Concomitant]

REACTIONS (8)
  - ASTHENIA [None]
  - CONVULSION [None]
  - DEVICE MALFUNCTION [None]
  - DIZZINESS [None]
  - DRUG ADMINISTRATION ERROR [None]
  - POST PROCEDURAL COMPLICATION [None]
  - SOMNOLENCE [None]
  - URINARY INCONTINENCE [None]
